FAERS Safety Report 7138909-0 (Version None)
Quarter: 2010Q4

REPORT INFORMATION
  Report Type: 
  Country: None (occurrence: None)
  Receive Date: 20101202
  Receipt Date: 20101202
  Transmission Date: 20110411
  Serious: Yes (Life-Threatening, Other)
  Sender: FDA-Public Use
  Company Number: None

PATIENT
  Age: 24 Year
  Sex: Female
  Weight: 58.9676 kg

DRUGS (2)
  1. PROPOXYPHENE HCL AND ACETAMINOPHEN [Suspect]
     Indication: ADNEXA UTERI PAIN
     Dosage: 1-2 DAILY PO
     Route: 048
     Dates: start: 20100201, end: 20101130
  2. PROPOXYPHENE HCL AND ACETAMINOPHEN [Suspect]
     Indication: ARTHRALGIA
     Dosage: 1-2 DAILY PO
     Route: 048
     Dates: start: 20100201, end: 20101130

REACTIONS (3)
  - DIZZINESS [None]
  - PALPITATIONS [None]
  - PRODUCT QUALITY ISSUE [None]
